FAERS Safety Report 6263260-0 (Version None)
Quarter: 2009Q3

REPORT INFORMATION
  Report Type: 
  Country: None (occurrence: None)
  Receive Date: 20090707
  Receipt Date: 20090707
  Transmission Date: 20100115
  Serious: No
  Sender: FDA-Public Use
  Company Number: None

PATIENT
  Age: 35 Year
  Sex: Female
  Weight: 61.2356 kg

DRUGS (2)
  1. ZYCAM NASAL GEL [Suspect]
     Indication: NASOPHARYNGITIS
     Dosage: ONE SPRAY PER NOSTRIL 3 X'S A DAY
     Dates: start: 20061030, end: 20061104
  2. ZYCAM NASAL GEL [Suspect]
     Indication: NASOPHARYNGITIS
     Dosage: ONE SPRAY PER NOSTRIL 3 X'S A DAY
     Dates: start: 20070113, end: 20070117

REACTIONS (1)
  - ANOSMIA [None]
